FAERS Safety Report 14898816 (Version 1)
Quarter: 2018Q2

REPORT INFORMATION
  Report Type: Spontaneous
  Country: AT (occurrence: AT)
  Receive Date: 20180515
  Receipt Date: 20180515
  Transmission Date: 20180711
  Serious: No
  Sender: FDA-Public Use
  Company Number: AT-PROMETHEUS LABORATORIES-2017PL000056

PATIENT
  Age: 64 Year
  Sex: Male

DRUGS (9)
  1. VOTRIENT [Suspect]
     Active Substance: PAZOPANIB HYDROCHLORIDE
     Indication: RENAL CELL CARCINOMA
     Dosage: UNK UNKNOWN, UNK
     Route: 065
     Dates: start: 201007
  2. TEMSIROLIMUS [Suspect]
     Active Substance: TEMSIROLIMUS
     Indication: PRODUCT USED FOR UNKNOWN INDICATION
     Dosage: 25 MG, WEEKLY
     Route: 065
     Dates: start: 200802
  3. CAPECITABINE. [Suspect]
     Active Substance: CAPECITABINE
     Indication: RENAL CELL CARCINOMA
     Dosage: UNK
     Route: 065
     Dates: start: 200505, end: 200802
  4. SUNITINIB [Suspect]
     Active Substance: SUNITINIB
     Dosage: 50 MG, UNK
     Route: 065
     Dates: start: 200806
  5. SUNITINIB [Suspect]
     Active Substance: SUNITINIB
     Dosage: 37.5 MG, UNK
     Route: 065
  6. PROLEUKIN [Suspect]
     Active Substance: ALDESLEUKIN
     Indication: RENAL CELL CARCINOMA
     Dosage: UNK UNKNOWN, SEE NARRATIVE
     Dates: start: 200401, end: 200802
  7. SUNITINIB [Suspect]
     Active Substance: SUNITINIB
     Indication: PRODUCT USED FOR UNKNOWN INDICATION
     Dosage: UNK UNKNOWN, UNK
     Route: 065
     Dates: start: 200602, end: 200802
  8. SUNITINIB [Suspect]
     Active Substance: SUNITINIB
     Dosage: 25 MG, UNK
     Route: 065
     Dates: end: 201007
  9. SUNITINIB [Suspect]
     Active Substance: SUNITINIB
     Dosage: 50 MG, DAILY
     Route: 065
     Dates: start: 201104

REACTIONS (7)
  - Disease progression [Unknown]
  - Cough [Unknown]
  - Pneumonitis [Unknown]
  - Anxiety [Unknown]
  - Hypertension [Unknown]
  - Metastases to lung [Unknown]
  - Dysgeusia [Unknown]

NARRATIVE: CASE EVENT DATE: 200412
